FAERS Safety Report 10566706 (Version 2)
Quarter: 2015Q3

REPORT INFORMATION
  Report Type: Spontaneous
  Country: BR (occurrence: BR)
  Receive Date: 20141105
  Receipt Date: 20150713
  Transmission Date: 20151125
  Serious: Yes (Hospitalization, Other)
  Sender: FDA-Public Use
  Company Number: BR-ELI_LILLY_AND_COMPANY-BR201410010168

PATIENT
  Age: 22 Year
  Sex: Female
  Weight: 86.5 kg

DRUGS (7)
  1. HUMALOG [Suspect]
     Active Substance: INSULIN LISPRO
     Indication: BLOOD GLUCOSE INCREASED
     Dosage: 2 IU, EACH MORNING
     Route: 058
     Dates: start: 2010
  2. HUMALOG [Suspect]
     Active Substance: INSULIN LISPRO
     Dosage: 8 IU, QD
     Route: 058
     Dates: start: 2010
  3. HUMALOG [Suspect]
     Active Substance: INSULIN LISPRO
     Dosage: 4 IU, EACH EVENING
     Route: 058
     Dates: start: 2010
  4. INSULIN N [Concomitant]
     Dosage: 12 IU, EACH EVENING
  5. INSULIN N [Concomitant]
     Dosage: 16 IU, EACH EVENING
  6. HUMALOG [Suspect]
     Active Substance: INSULIN LISPRO
     Dosage: 4 IU, QD
     Route: 058
     Dates: start: 2010
  7. HUMALOG [Suspect]
     Active Substance: INSULIN LISPRO
     Dosage: 6 IU, QD
     Route: 058
     Dates: start: 2010

REACTIONS (4)
  - Diabetic ketoacidosis [Unknown]
  - Blood glucose increased [Not Recovered/Not Resolved]
  - Exposure during pregnancy [Unknown]
  - Blood pressure increased [Recovered/Resolved]

NARRATIVE: CASE EVENT DATE: 20140404
